FAERS Safety Report 9868269 (Version 2)
Quarter: 2014Q2

REPORT INFORMATION
  Report Type: Spontaneous
  Country: IE (occurrence: IE)
  Receive Date: 20140204
  Receipt Date: 20140511
  Transmission Date: 20141212
  Serious: Yes (Death, Other)
  Sender: FDA-Public Use
  Company Number: PHFR2014IE001219

PATIENT
  Age: 72 Year
  Sex: Female

DRUGS (1)
  1. CLOZARIL [Suspect]
     Indication: SCHIZOPHRENIA
     Dosage: 400 MG, DAILY
     Route: 048
     Dates: start: 20010701

REACTIONS (2)
  - Myocardial infarction [Fatal]
  - Feeling abnormal [Unknown]
